FAERS Safety Report 4821521-3 (Version None)
Quarter: 2005Q4

REPORT INFORMATION
  Report Type: 
  Country: None (occurrence: None)
  Receive Date: 20051103
  Receipt Date: 20051020
  Transmission Date: 20060501
  Serious: Yes (Other)
  Sender: FDA-Public Use
  Company Number: 200504786

PATIENT
  Age: 51 Year
  Sex: Female

DRUGS (3)
  1. RESTASIS [Suspect]
     Indication: DRY EYE
     Dosage: 2 DROP BID EYE
     Route: 047
     Dates: start: 20050209
  2. ALPHAGAN [Concomitant]
  3. LUMIGAN [Concomitant]

REACTIONS (9)
  - ARTHRALGIA [None]
  - BACK PAIN [None]
  - CONDITION AGGRAVATED [None]
  - GLAUCOMA [None]
  - INTRAOCULAR PRESSURE INCREASED [None]
  - IRITIS [None]
  - MUSCULOSKELETAL DISORDER [None]
  - SPONDYLOARTHROPATHY [None]
  - VISION BLURRED [None]
